FAERS Safety Report 4627044-9 (Version None)
Quarter: 2005Q2

REPORT INFORMATION
  Report Type: 
  Country: None (occurrence: None)
  Receive Date: 20050401
  Receipt Date: 20050401
  Transmission Date: 20051028
  Serious: Yes (Other)
  Sender: FDA-Public Use
  Company Number: None

PATIENT
  Sex: Female
  Weight: 105.2345 kg

DRUGS (2)
  1. PAXIL [Suspect]
     Indication: ANXIETY
     Dosage: 20 MG
     Dates: start: 20050222, end: 20050330
  2. PAXIL [Suspect]
     Indication: DEPRESSION
     Dosage: 20 MG
     Dates: start: 20050222, end: 20050330

REACTIONS (5)
  - ANXIETY [None]
  - DRUG INEFFECTIVE [None]
  - INSOMNIA [None]
  - IRRITABLE BOWEL SYNDROME [None]
  - PHARMACEUTICAL PRODUCT COMPLAINT [None]
